FAERS Safety Report 21294815 (Version 1)
Quarter: 2022Q3

REPORT INFORMATION
  Report Type: Spontaneous
  Country: CH (occurrence: CH)
  Receive Date: 20220905
  Receipt Date: 20220905
  Transmission Date: 20221027
  Serious: Yes (Hospitalization)
  Sender: FDA-Public Use
  Company Number: None

PATIENT
  Age: 48 Year
  Sex: Female
  Weight: 61.3 kg

DRUGS (15)
  1. LONSURF [Suspect]
     Active Substance: TIPIRACIL HYDROCHLORIDE\TRIFLURIDINE
     Indication: Adenocarcinoma of colon
     Dosage: DOSE FROM 24.5-28.5.22 AND FROM 30.5-3.6.22, FOLLOWED BY A PAUSE. WHETHER IT STARTED AGAIN AFTERWARD
     Route: 048
     Dates: start: 20220301, end: 20220603
  2. XARELTO [Concomitant]
     Active Substance: RIVAROXABAN
     Indication: Pulmonary embolism
     Dosage: 20 MG, QD
     Route: 048
     Dates: start: 202111
  3. NOVALGIN (METAMIZOLE SODIUM) [Concomitant]
     Active Substance: METAMIZOLE SODIUM
     Indication: Pain
     Dosage: FIX 1 TABLET (500 MG) 4 TIMES A DAY AND IN RESERVE ADDITIONALLY 1 TABLET (500 MG) 4 TIMES A DAY
     Route: 048
     Dates: start: 202104
  4. ZOLPIDEM [Concomitant]
     Active Substance: ZOLPIDEM TARTRATE
     Indication: Sleep disorder
     Dosage: AS NECESSARY
     Route: 048
  5. CALCIUM\CHOLECALCIFEROL [Concomitant]
     Active Substance: CALCIUM\CHOLECALCIFEROL
     Indication: Product used for unknown indication
     Dosage: 500 MG/800 IE
     Route: 048
     Dates: start: 202109
  6. OXYCODON MEPHA RETARD UNO [Concomitant]
     Indication: Pain
     Dosage: 10 MG, BID
     Route: 048
  7. OXYCODON MEPHA RETARD UNO [Concomitant]
     Dosage: 5 MG, QD
     Route: 048
  8. PREGABALIN [Concomitant]
     Active Substance: PREGABALIN
     Indication: Neuralgia
     Dosage: 1-0-1-0 INCREASING WEEKLY TO 3-0-3-0 DEPENDING ON PAIN/ADVERSE REACTIONS
     Route: 048
     Dates: start: 202206
  9. CAPSIN [CAPSAICIN] [Concomitant]
     Indication: Pain
     Dosage: APPLY TO THIGHS UP TO 3 TIMES PER DAY; AS NECESSARY
     Route: 061
     Dates: start: 202206
  10. OXYCODONE HYDROCHLORIDE [Concomitant]
     Active Substance: OXYCODONE HYDROCHLORIDE
     Indication: Pain
     Dosage: UP TO 10 TIMES PER DAY 0.5ML (= 5MG PER DOSE) ; AS NECESSARY
     Route: 048
  11. ONDANSETRON [Concomitant]
     Active Substance: ONDANSETRON
     Indication: Nausea
     Dosage: UP TO 3 PER DAY ONE TABLET; AS NECESSARY
     Route: 048
     Dates: start: 202104
  12. LORAZEPAM [Concomitant]
     Active Substance: LORAZEPAM
     Indication: Sleep disorder
     Dosage: ONE TABLET AT MOST ONCE A DAY BEFORE GOING TO BED; AS NECESSARY
     Route: 048
     Dates: start: 202105, end: 202206
  13. MAGNESIA S PELLEGRINO [Concomitant]
     Indication: Constipation
     Dosage: AS NECESSARY
     Route: 048
     Dates: start: 202104
  14. XGEVA [Concomitant]
     Active Substance: DENOSUMAB
     Indication: Metastases to bone
     Dosage: 120 MG, 1X A MONTH
     Route: 058
     Dates: start: 202203
  15. REMERON [Concomitant]
     Active Substance: MIRTAZAPINE
     Indication: Sleep disorder
     Dosage: 15 MG, QD
     Route: 048
     Dates: start: 202205

REACTIONS (1)
  - Enterocolitis haemorrhagic [Recovered/Resolved]

NARRATIVE: CASE EVENT DATE: 20220605
